FAERS Safety Report 8339909 (Version 2)
Quarter: 2012Q4

REPORT INFORMATION
  Report Type: 
  Country: FR (occurrence: FR)
  Receive Date: 20120117
  Receipt Date: 20121114
  Transmission Date: 20130627
  Serious: Yes (Death, Other)
  Sender: FDA-Public Use
  Company Number: FR-CELGENEUS-056-50794-12010283

PATIENT

DRUGS (2)
  1. VIDAZA [Suspect]
     Indication: MDS
     Route: 065
  2. VIDAZA [Suspect]
     Indication: ACUTE MYELOID LEUKEMIA

REACTIONS (5)
  - Death [Fatal]
  - Graft versus host disease [Unknown]
  - Myelodysplastic syndrome [Unknown]
  - Acute myeloid leukaemia [Unknown]
  - Condition aggravated [Unknown]
